FAERS Safety Report 8361978-7 (Version None)
Quarter: 2012Q2

REPORT INFORMATION
  Report Type: 
  Country: None (occurrence: None)
  Receive Date: 20120515
  Receipt Date: 20120322
  Transmission Date: 20120825
  Serious: No
  Sender: FDA-Public Use
  Company Number: US-ASTRAZENECA-2012SE19480

PATIENT
  Age: 77 Year
  Sex: Male

DRUGS (5)
  1. VITAMIN E [Concomitant]
  2. SYNTHROID [Concomitant]
  3. VITAMIN D [Concomitant]
  4. CRESTOR [Suspect]
     Route: 048
     Dates: start: 20110401
  5. MULTI-VITAMIN [Concomitant]

REACTIONS (2)
  - HIGH DENSITY LIPOPROTEIN DECREASED [None]
  - INTENTIONAL DRUG MISUSE [None]
